FAERS Safety Report 9547280 (Version 1)
Quarter: 2013Q2

REPORT INFORMATION
  Report Type: Spontaneous
  Country: US (occurrence: None)
  Receive Date: 20130606
  Receipt Date: 20130606
  Transmission Date: 20140414
  Serious: Yes (Other)
  Sender: FDA-Public Use
  Company Number: 163-POMAL-13034339(0)

PATIENT
  Age: 58 Year
  Sex: Male

DRUGS (9)
  1. POMALYST [Suspect]
     Indication: PLASMA CELL MYELOMA
     Dosage: 4 MG, 21 IN 21 D, PO
     Route: 048
     Dates: start: 20130304
  2. CARAFATE (SUCRALFATE) (UNKNOWN) [Concomitant]
  3. DILAUDID (HYDROMORPHONE HYDROCHLORIDE) (UNKNOWN) [Concomitant]
  4. LORTAB (VICODIN) (UNKNOWN) [Concomitant]
  5. METHADONE HCL (METHADONE HYDROCHLORIDE) (UNKNOWN) [Concomitant]
  6. NORVASC (AMLODIPINE BESILATE) (UNKNOWN) [Concomitant]
  7. OMEPRAZOLE (OMEPRAZOLE) (UNKNOWN) [Concomitant]
  8. PROMETHAZINE HCL (PROMETHAZINE HYDROCHLORIDE) (UNKNOWN)? [Concomitant]
  9. METOCLOPRAMIDE (METOCLOPRAMIDE) (UNKNOWN) [Concomitant]

REACTIONS (1)
  - Rash [None]
